FAERS Safety Report 8623881-4 (Version None)
Quarter: 2012Q3

REPORT INFORMATION
  Report Type: 
  Country: None (occurrence: None)
  Receive Date: 20120824
  Receipt Date: 20120824
  Transmission Date: 20120928
  Serious: Yes (Life-Threatening, Hospitalization)
  Sender: FDA-Public Use
  Company Number: None

PATIENT
  Age: 87 Year
  Sex: Female
  Weight: 77.5651 kg

DRUGS (2)
  1. PLASMANATE [Suspect]
     Indication: COAGULOPATHY
     Dosage: 6 UNITS INTRAVENOUS
     Route: 042
     Dates: start: 20120525, end: 20120530
  2. PRADAXA [Suspect]
     Indication: ATRIAL FIBRILLATION
     Dosage: ONE CAPSULE TWICE A DAY BY MOUTH
     Route: 048
     Dates: start: 20110909, end: 20120525

REACTIONS (2)
  - GASTROINTESTINAL HAEMORRHAGE [None]
  - INTERNATIONAL NORMALISED RATIO INCREASED [None]
